FAERS Safety Report 23802984 (Version 1)
Quarter: 2024Q2

REPORT INFORMATION
  Report Type: Spontaneous
  Country: CN (occurrence: CN)
  Receive Date: 20240501
  Receipt Date: 20240501
  Transmission Date: 20240716
  Serious: Yes (Other)
  Sender: FDA-Public Use
  Company Number: CN-MYLANLABS-2024M1039207

PATIENT
  Age: 62 Year
  Sex: Female
  Weight: 66 kg

DRUGS (1)
  1. LIPITOR [Suspect]
     Active Substance: ATORVASTATIN CALCIUM
     Indication: Hyperlipidaemia
     Dosage: 20 MILLIGRAM, QD (20 MG ORALLY QD)
     Route: 048
     Dates: start: 20240423, end: 20240423

REACTIONS (2)
  - Pruritus [Recovering/Resolving]
  - Hypoaesthesia [Recovering/Resolving]

NARRATIVE: CASE EVENT DATE: 20240423
